FAERS Safety Report 11667556 (Version 1)
Quarter: 2015Q4

REPORT INFORMATION
  Report Type: Spontaneous
  Country: US (occurrence: US)
  Receive Date: 20151027
  Receipt Date: 20151027
  Transmission Date: 20160304
  Serious: No
  Sender: FDA-Public Use
  Company Number: US-ELI_LILLY_AND_COMPANY-US201003000368

PATIENT
  Age: 57 Year
  Sex: Female

DRUGS (1)
  1. FORTEO [Suspect]
     Active Substance: TERIPARATIDE
     Indication: OSTEOPOROSIS
     Dosage: 20 UG, DAILY (1/D)
     Route: 065
     Dates: start: 20090527

REACTIONS (15)
  - Feeling of body temperature change [Unknown]
  - Eye pain [Unknown]
  - Blister [Unknown]
  - Fluid retention [Unknown]
  - Eye disorder [Unknown]
  - Nausea [Unknown]
  - Gastric disorder [Unknown]
  - Bone disorder [Unknown]
  - Dyspnoea [Unknown]
  - Pain in extremity [Unknown]
  - Arthritis [Unknown]
  - Swelling [Unknown]
  - Ocular hyperaemia [Unknown]
  - Pleural effusion [Unknown]
  - Drug interaction [Unknown]

NARRATIVE: CASE EVENT DATE: 20100219
